FAERS Safety Report 5295910-X (Version None)
Quarter: 2007Q1

REPORT INFORMATION
  Report Type: 
  Country: None (occurrence: None)
  Receive Date: 20070201
  Receipt Date: 20061018
  Transmission Date: 20070707
  Serious: No
  Sender: FDA-Public Use
  Company Number: 2006PV023484

PATIENT
  Age: 57 Year
  Sex: Female
  Weight: 74.8435 kg

DRUGS (4)
  1. BYETTA [Suspect]
     Indication: DIABETES MELLITUS NON-INSULIN-DEPENDENT
     Dosage: 10 MCG; TID; SC; 5 MCG; BID; SC
     Route: 058
     Dates: end: 20060801
  2. BYETTA [Suspect]
     Indication: DIABETES MELLITUS NON-INSULIN-DEPENDENT
     Dosage: 10 MCG; TID; SC; 5 MCG; BID; SC
     Route: 058
     Dates: start: 20060801, end: 20061011
  3. NOVOLOG [Concomitant]
  4. NOVOLIN N [Concomitant]

REACTIONS (1)
  - BLOOD GLUCOSE INCREASED [None]
